FAERS Safety Report 24345864 (Version 1)
Quarter: 2024Q3

REPORT INFORMATION
  Report Type: Spontaneous
  Country: US (occurrence: US)
  Receive Date: 20240920
  Receipt Date: 20240920
  Transmission Date: 20241017
  Serious: Yes (Disabling)
  Sender: NOVARTIS
  Company Number: US-002147023-NVSC2024US185035

PATIENT
  Age: 83 Year
  Sex: Female

DRUGS (2)
  1. GLEEVEC [Suspect]
     Active Substance: IMATINIB MESYLATE
     Indication: Chronic myeloid leukaemia
     Dosage: 600 MG, QD
     Route: 065
     Dates: start: 2001
  2. GLEEVEC [Suspect]
     Active Substance: IMATINIB MESYLATE
     Dosage: 400 MG, QD
     Route: 065

REACTIONS (7)
  - Fall [Unknown]
  - Oedema [Recovering/Resolving]
  - Fatigue [Unknown]
  - Diarrhoea [Unknown]
  - Scoliosis [Unknown]
  - Periorbital oedema [Unknown]
  - Oedema peripheral [Unknown]
